FAERS Safety Report 8207908-X (Version None)
Quarter: 2012Q1

REPORT INFORMATION
  Report Type: 
  Country: None (occurrence: None)
  Receive Date: 20120314
  Receipt Date: 20120306
  Transmission Date: 20120608
  Serious: Yes (Other)
  Sender: FDA-Public Use
  Company Number: US-FRI-1000028878

PATIENT
  Age: 59 Year
  Sex: Female

DRUGS (8)
  1. THYROID TAB [Suspect]
     Dosage: 15 MG
     Route: 048
     Dates: start: 20111101
  2. INDERAL [Concomitant]
     Indication: HYPERTENSION
  3. CALCIUM [Concomitant]
  4. THYROID TAB [Suspect]
     Dosage: 45 MG
     Route: 048
     Dates: start: 20120201
  5. THYROID TAB [Suspect]
     Indication: HYPOTHYROIDISM
     Dosage: 75 MG
     Route: 048
     Dates: start: 20110101, end: 20110101
  6. THYROID TAB [Suspect]
     Dosage: 30 MG
     Route: 048
     Dates: end: 20120201
  7. KLONOPIN [Concomitant]
  8. MAGNESIUM [Concomitant]

REACTIONS (10)
  - BLOOD THYROID STIMULATING HORMONE INCREASED [None]
  - DIZZINESS [None]
  - THYROXINE DECREASED [None]
  - HEADACHE [None]
  - BLOOD PRESSURE INCREASED [None]
  - HYPERHIDROSIS [None]
  - NIGHT SWEATS [None]
  - PALPITATIONS [None]
  - CRYING [None]
  - HEART RATE INCREASED [None]
